FAERS Safety Report 18492808 (Version 1)
Quarter: 2020Q4

REPORT INFORMATION
  Report Type: Report from Study
  Country: US (occurrence: US)
  Receive Date: 20201112
  Receipt Date: 20201112
  Transmission Date: 20210114
  Serious: Yes (Hospitalization)
  Sender: FDA-Public Use
  Company Number: US-ROCHE-1640181

PATIENT
  Age: 47 Year
  Sex: Female
  Weight: 100.9 kg

DRUGS (9)
  1. TRASTUZUMAB. [Suspect]
     Active Substance: TRASTUZUMAB
     Indication: BREAST CANCER
     Dosage: OVER 90 MIN ON DAY 1?LAST DOSE ADMINISTERED ON : 27/APR/2015
     Route: 041
     Dates: start: 20150130
  2. TRASTUZUMAB. [Suspect]
     Active Substance: TRASTUZUMAB
     Dosage: OVER 30-60 MIN ON DAY 1: CYCLE 2-6
     Route: 041
     Dates: end: 20150427
  3. CARBOPLATIN. [Suspect]
     Active Substance: CARBOPLATIN
     Indication: BREAST CANCER
     Dosage: AUC=6 MG/ML/MIN OVER 30-60MIN ON DAY 1: CYCLE 1, 2-6?LAST DOSE ADMINISTERED ON : 27/APR/2015
     Route: 042
     Dates: start: 20150130, end: 20150427
  4. TRASTUZUMAB. [Suspect]
     Active Substance: TRASTUZUMAB
     Route: 042
  5. DOCETAXEL. [Suspect]
     Active Substance: DOCETAXEL
     Indication: BREAST CANCER
     Dosage: OVER 60 MIN ON DAY 1: CYCLE 1, 2-6?LAST DOSE ADMINISTERED ON : 27/APR/2015
     Route: 042
     Dates: start: 20150130, end: 20150427
  6. ARIMIDEX [Concomitant]
     Active Substance: ANASTROZOLE
     Route: 048
     Dates: start: 20150130, end: 20150427
  7. PERTUZUMAB. [Suspect]
     Active Substance: PERTUZUMAB
     Indication: BREAST CANCER
     Dosage: OVER 90 MIN ON DAY 1: CYCLE 1?LAST DOSE ADMINISTERED ON : 27/APR/2015
     Route: 042
     Dates: start: 20150130
  8. PERTUZUMAB. [Suspect]
     Active Substance: PERTUZUMAB
     Dosage: OVER 30-60 MIN ON DAY 1: CYCLE 2-6
     Route: 042
     Dates: end: 20150427
  9. DOCETAXEL. [Suspect]
     Active Substance: DOCETAXEL
     Route: 042
     Dates: end: 20150427

REACTIONS (2)
  - Anaemia [Recovered/Resolved]
  - Febrile neutropenia [Unknown]

NARRATIVE: CASE EVENT DATE: 20150506
